FAERS Safety Report 5371675-8 (Version None)
Quarter: 2007Q2

REPORT INFORMATION
  Report Type: 
  Country: None (occurrence: None)
  Receive Date: 20070627
  Receipt Date: 20070622
  Transmission Date: 20071010
  Serious: Yes (Death)
  Sender: FDA-Public Use
  Company Number: UA-BAYER-200713468GDS

PATIENT
  Age: 76 Year
  Sex: Female
  Weight: 100 kg

DRUGS (5)
  1. ASPIRIN [Suspect]
     Indication: THROMBOSIS PROPHYLAXIS
     Route: 048
     Dates: start: 20070611, end: 20070613
  2. KETANOV [Concomitant]
     Indication: BONE PAIN
     Route: 030
     Dates: start: 20070611, end: 20070618
  3. MANINILE (GLIBENCLAMIDE) [Concomitant]
     Indication: DIABETES MELLITUS
     Route: 065
     Dates: start: 20070611, end: 20070615
  4. INSULINE [Concomitant]
     Indication: DIABETES MELLITUS
     Route: 058
  5. KVAMATEL (FAMATIDINE) [Concomitant]
     Indication: DUODENAL ULCER
     Route: 065

REACTIONS (5)
  - DUODENAL ULCER [None]
  - GASTROINTESTINAL HAEMORRHAGE [None]
  - HAEMATOCHEZIA [None]
  - PULMONARY EMBOLISM [None]
  - SHOCK [None]
